FAERS Safety Report 16567898 (Version 1)
Quarter: 2019Q3

REPORT INFORMATION
  Report Type: Spontaneous
  Country: FR (occurrence: FR)
  Receive Date: 20190712
  Receipt Date: 20190712
  Transmission Date: 20191004
  Serious: Yes (Other)
  Sender: FDA-Public Use
  Company Number: FR-MYLANLABS-2019M1064902

PATIENT

DRUGS (8)
  1. NULOJIX [Suspect]
     Active Substance: BELATACEPT
     Indication: IMMUNOSUPPRESSANT DRUG THERAPY
     Dosage: 5 MILLIGRAM/KILOGRAM (5 MG/KG, Q4W)
     Route: 065
  2. PREDNISONE. [Suspect]
     Active Substance: PREDNISONE
     Indication: IMMUNOSUPPRESSANT DRUG THERAPY
     Dosage: 5 MILLIGRAM, QW (FROM DAY 4 TAPERED BY 5 MG WEEKLY TO A FINAL MAINTENANCE DOSE OF 5 MG/D)
     Route: 065
  3. PREDNISONE. [Suspect]
     Active Substance: PREDNISONE
     Dosage: 5 MILLIGRAM, QD (FROM DAY 4 TAPERED BY 5 MG WEEKLY TO A FINAL MAINTENANCE DOSE OF 5 MG/D)
     Route: 065
  4. MYCOPHENOLATE MOFETIL. [Suspect]
     Active Substance: MYCOPHENOLATE MOFETIL
     Indication: IMMUNOSUPPRESSANT DRUG THERAPY
     Dosage: UNK
  5. PREDNISONE. [Suspect]
     Active Substance: PREDNISONE
     Indication: RENAL TRANSPLANT
     Dosage: 20 MILLIGRAM, QD (20 MG, QD FROM DAY 4 TAPERED BY 5 MG WEEKLY TO A FINAL MAINTENANCE DOSE OF 5 MG/D)
     Route: 065
  6. PREDNISONE. [Suspect]
     Active Substance: PREDNISONE
     Dosage: UNK
     Route: 065
  7. MYCOPHENOLATE MOFETIL. [Suspect]
     Active Substance: MYCOPHENOLATE MOFETIL
     Indication: RENAL TRANSPLANT
     Dosage: 2 GRAM, QD (2 G, QD)
     Route: 065
  8. NULOJIX [Suspect]
     Active Substance: BELATACEPT
     Indication: RENAL TRANSPLANT
     Dosage: 10 MILLIGRAM/KILOGRAM (10 MG/KG, UNK AT DAYS 1 AND 5 AND AT WEEKS 2, 4, 8 AND 12)
     Route: 065

REACTIONS (1)
  - Kidney transplant rejection [Unknown]
